FAERS Safety Report 6248765-0 (Version None)
Quarter: 2009Q3

REPORT INFORMATION
  Report Type: 
  Country: None (occurrence: None)
  Receive Date: 20090624
  Receipt Date: 20090616
  Transmission Date: 20100115
  Serious: Yes (Hospitalization, Other)
  Sender: FDA-Public Use
  Company Number: ADE# 09252DPR

PATIENT
  Age: 70 Year
  Sex: Female

DRUGS (2)
  1. DIGOXIN [Suspect]
     Indication: CARDIAC FAILURE CONGESTIVE
  2. DIGOXIN [Suspect]
     Indication: HEART RATE IRREGULAR

REACTIONS (5)
  - DEPRESSED MOOD [None]
  - FATIGUE [None]
  - GASTROINTESTINAL DISORDER [None]
  - PRODUCT QUALITY ISSUE [None]
  - VAGINAL HAEMORRHAGE [None]
